FAERS Safety Report 6091050-0 (Version None)
Quarter: 2009Q1

REPORT INFORMATION
  Report Type: 
  Country: None (occurrence: None)
  Receive Date: 20090225
  Receipt Date: 20090216
  Transmission Date: 20090719
  Serious: Yes (Other)
  Sender: FDA-Public Use
  Company Number: DE-SOLVAY-00209000990

PATIENT
  Age: 803 Month
  Sex: Female

DRUGS (1)
  1. COVERSUM 4MG [Suspect]
     Indication: HYPERTENSION
     Dosage: DAILY DOSE: 4 MILLIGRAM(S)
     Route: 048
     Dates: start: 20010201, end: 20010401

REACTIONS (1)
  - VISUAL ACUITY REDUCED [None]
